FAERS Safety Report 16822142 (Version 1)
Quarter: 2019Q3

REPORT INFORMATION
  Report Type: Report from Study
  Country: None (occurrence: US)
  Receive Date: 20190918
  Receipt Date: 20190918
  Transmission Date: 20191005
  Serious: Yes (Hospitalization)
  Sender: FDA-Public Use
  Company Number: US-ABBVIE-19K-163-2923437-00

PATIENT
  Age: 61 Year
  Sex: Female

DRUGS (1)
  1. HUMIRA [Suspect]
     Active Substance: ADALIMUMAB
     Indication: COLITIS ULCERATIVE
     Dosage: CITRATE FREE
     Route: 058

REACTIONS (5)
  - Chest discomfort [Recovering/Resolving]
  - Inflammation [Unknown]
  - Dyspnoea [Unknown]
  - Muscle tightness [Recovering/Resolving]
  - Injury [Unknown]

NARRATIVE: CASE EVENT DATE: 20190910
